FAERS Safety Report 4559553-5 (Version None)
Quarter: 2005Q1

REPORT INFORMATION
  Report Type: 
  Country: None (occurrence: None)
  Receive Date: 20050124
  Receipt Date: 20050114
  Transmission Date: 20050727
  Serious: Yes (Hospitalization)
  Sender: FDA-Public Use
  Company Number: FR-GLAXOSMITHKLINE-B0365193A

PATIENT
  Age: 40 Year
  Sex: Female
  Weight: 75 kg

DRUGS (7)
  1. TELZIR [Suspect]
     Indication: HIV INFECTION
     Dosage: 700MG TWICE PER DAY
     Route: 048
     Dates: start: 20041224, end: 20050104
  2. VIREAD [Suspect]
     Indication: HIV INFECTION
     Dosage: 300MG PER DAY
     Route: 048
     Dates: start: 20041224, end: 20050104
  3. KEPPRA [Concomitant]
     Indication: EPILEPSY
     Dosage: 500MG TWICE PER DAY
     Route: 048
     Dates: start: 20040517
  4. OMEPRAZOLE [Concomitant]
     Dosage: 20MG PER DAY
     Route: 048
     Dates: start: 20041001
  5. PROZAC [Concomitant]
     Dosage: 20MG TWICE PER DAY
     Route: 048
     Dates: start: 20030301
  6. SERETIDE [Concomitant]
     Route: 055
     Dates: start: 20041001
  7. EPIVIR [Concomitant]
     Indication: HIV INFECTION
     Dosage: 300MG PER DAY
     Route: 048
     Dates: start: 20010101, end: 20050104

REACTIONS (6)
  - DIARRHOEA [None]
  - FATIGUE [None]
  - OEDEMA [None]
  - PYREXIA [None]
  - URTICARIA [None]
  - VOMITING [None]
